FAERS Safety Report 5079853-2 (Version None)
Quarter: 2006Q3

REPORT INFORMATION
  Report Type: 
  Country: None (occurrence: None)
  Receive Date: 20060809
  Receipt Date: 20060727
  Transmission Date: 20061208
  Serious: Yes (Other)
  Sender: FDA-Public Use
  Company Number: 2006092688

PATIENT
  Age: 55 Year
  Sex: Male
  Weight: 88.4514 kg

DRUGS (6)
  1. VIAGRA [Suspect]
     Indication: ERECTILE DYSFUNCTION
     Dosage: AS NECESSARY, ORAL
     Route: 048
  2. LANOXIN [Concomitant]
  3. LISINOPRIL [Concomitant]
  4. COATED ASPIRIN (ACETYLSALICYLIC ACID) [Concomitant]
  5. ZOCOR [Concomitant]
  6. TRAZODONE HCL [Concomitant]

REACTIONS (11)
  - CHORIORETINOPATHY [None]
  - DIABETES MELLITUS [None]
  - DYSPEPSIA [None]
  - HEADACHE [None]
  - IMPAIRED DRIVING ABILITY [None]
  - INTRAOCULAR PRESSURE INCREASED [None]
  - MACULAR DEGENERATION [None]
  - PAIN [None]
  - RETINAL DISORDER [None]
  - RETINAL SCAR [None]
  - VISUAL ACUITY REDUCED [None]
